FAERS Safety Report 5258048-3 (Version None)
Quarter: 2007Q1

REPORT INFORMATION
  Report Type: 
  Country: None (occurrence: None)
  Receive Date: 20070307
  Receipt Date: 20061215
  Transmission Date: 20070707
  Serious: Yes (Other)
  Sender: FDA-Public Use
  Company Number: US-PFIZER INC-2006027719

PATIENT
  Sex: Male
  Weight: 81.6 kg

DRUGS (4)
  1. BEXTRA [Suspect]
     Indication: RHEUMATOID ARTHRITIS
     Route: 048
  2. REMICADE [Suspect]
     Indication: RHEUMATOID ARTHRITIS
     Route: 050
  3. ATENOLOL [Concomitant]
     Indication: HYPERTENSION
     Route: 048
  4. GLUCOTROL XL [Concomitant]
     Indication: DIABETES MELLITUS
     Route: 048

REACTIONS (2)
  - ECZEMA [None]
  - RASH [None]
